FAERS Safety Report 14655592 (Version 2)
Quarter: 2018Q1

REPORT INFORMATION
  Report Type: Report from Study
  Country: SG (occurrence: SG)
  Receive Date: 20180319
  Receipt Date: 20180322
  Transmission Date: 20180509
  Serious: Yes (Death, Other)
  Sender: FDA-Public Use
  Company Number: SG-TEVA-2018-SG-868826

PATIENT
  Age: 70 Year
  Sex: Female

DRUGS (3)
  1. RISEDRONATE [Suspect]
     Active Substance: RISEDRONATE SODIUM
     Indication: OSTEOPENIA
     Dosage: FOR 1 YEAR
     Route: 048
     Dates: start: 200909
  2. ALENDRONATE [Suspect]
     Active Substance: ALENDRONATE SODIUM
     Indication: OSTEOPENIA
     Route: 048
     Dates: start: 2004, end: 2009
  3. XGEVA [Suspect]
     Active Substance: DENOSUMAB
     Indication: METASTASES TO BONE
     Dosage: 120MG MONTHLY WITH A PAUSE FROM JULY 2013 TO JANUARY 2014; OVER 33 MONTHS (TOTAL 23 DOSES)
     Route: 058
     Dates: start: 201107, end: 201404

REACTIONS (2)
  - Stress fracture [Unknown]
  - Atypical femur fracture [Unknown]

NARRATIVE: CASE EVENT DATE: 201410
